FAERS Safety Report 6901546-4 (Version None)
Quarter: 2010Q3

REPORT INFORMATION
  Report Type: 
  Country: None (occurrence: None)
  Receive Date: 20100803
  Receipt Date: 20080214
  Transmission Date: 20110219
  Serious: No
  Sender: FDA-Public Use
  Company Number: US-PFIZER INC-2008015192

PATIENT
  Sex: Male
  Weight: 88.9 kg

DRUGS (7)
  1. LYRICA [Suspect]
     Indication: NEURALGIA
     Dates: start: 20070601
  2. NORVASC [Concomitant]
  3. AMITRIPTYLINE HYDROCHLORIDE [Concomitant]
  4. MONTELUKAST SODIUM [Concomitant]
  5. ZANTAC [Concomitant]
  6. PROTONIX [Concomitant]
  7. DETROL LA [Concomitant]

REACTIONS (1)
  - WEIGHT INCREASED [None]
